FAERS Safety Report 9892803 (Version 2)
Quarter: 2014Q1

REPORT INFORMATION
  Report Type: Report from Study
  Country: AR (occurrence: AR)
  Receive Date: 20140212
  Receipt Date: 20140212
  Transmission Date: 20141002
  Serious: Yes (Other)
  Sender: FDA-Public Use
  Company Number: AR-ROCHE-1317128

PATIENT
  Sex: Male

DRUGS (1)
  1. RANIBIZUMAB [Suspect]
     Indication: CORNEAL LESION
     Route: 050
     Dates: start: 2010

REACTIONS (5)
  - Visual impairment [Unknown]
  - Lacrimation increased [Unknown]
  - Eye pain [Unknown]
  - Drug ineffective [Unknown]
  - Visual acuity reduced [Not Recovered/Not Resolved]
